FAERS Safety Report 11379290 (Version 1)
Quarter: 2015Q3

REPORT INFORMATION
  Report Type: Spontaneous
  Country: NZ (occurrence: None)
  Receive Date: 20150812
  Receipt Date: 20150812
  Transmission Date: 20151125
  Serious: Yes (Other)
  Sender: FDA-Public Use
  Company Number: ABR_02325_2015

PATIENT
  Age: 33 Year
  Sex: Female

DRUGS (2)
  1. LAMOTRIGINE (LAMOTRIGINE) [Suspect]
     Active Substance: LAMOTRIGINE
     Indication: TEMPORAL LOBE EPILEPSY
     Dosage: DF
  2. CLOBAZAM [Concomitant]
     Active Substance: CLOBAZAM

REACTIONS (4)
  - Hypogammaglobulinaemia [None]
  - Appendicitis [None]
  - Upper respiratory tract infection [None]
  - Disease recurrence [None]
